FAERS Safety Report 5722789-1 (Version None)
Quarter: 2008Q2

REPORT INFORMATION
  Report Type: 
  Country: None (occurrence: None)
  Receive Date: 20080429
  Receipt Date: 20080122
  Transmission Date: 20081010
  Serious: Yes (Hospitalization)
  Sender: FDA-Public Use
  Company Number: US-ASTRAZENECA-2008UW01620

PATIENT
  Age: 68 Year
  Sex: Female

DRUGS (4)
  1. NEXIUM [Suspect]
     Indication: GASTROOESOPHAGEAL REFLUX DISEASE
     Route: 048
     Dates: start: 20080112
  2. ULTRAM [Suspect]
     Dates: start: 20080113, end: 20080122
  3. ZEGERID [Concomitant]
  4. ZANTAC [Concomitant]

REACTIONS (2)
  - BACK PAIN [None]
  - DYSURIA [None]
